FAERS Safety Report 24871049 (Version 2)
Quarter: 2025Q1

REPORT INFORMATION
  Report Type: Spontaneous
  Country: FI (occurrence: FI)
  Receive Date: 20250122
  Receipt Date: 20250124
  Transmission Date: 20250408
  Serious: Yes (Death, Hospitalization, Other)
  Sender: ABBVIE
  Company Number: FI-ABBVIE-6096479

PATIENT

DRUGS (3)
  1. VENETOCLAX [Suspect]
     Active Substance: VENETOCLAX
     Indication: Chronic lymphocytic leukaemia
     Route: 048
     Dates: start: 202211, end: 20230107
  2. VENETOCLAX [Suspect]
     Active Substance: VENETOCLAX
     Indication: Chronic lymphocytic leukaemia
     Route: 048
     Dates: start: 202210, end: 202211
  3. OBINUTUZUMAB [Concomitant]
     Active Substance: OBINUTUZUMAB
     Indication: Chronic lymphocytic leukaemia
     Dates: start: 202210, end: 20230107

REACTIONS (24)
  - Lung disorder [Fatal]
  - Organising pneumonia [Unknown]
  - Oropharyngeal candidiasis [Unknown]
  - Coronavirus test positive [Unknown]
  - Malaise [Unknown]
  - Oropharyngeal pain [Unknown]
  - Lung opacity [Unknown]
  - COVID-19 [Unknown]
  - Drug ineffective [Fatal]
  - Pyrexia [Recovered/Resolved]
  - Pneumocystis jirovecii infection [Unknown]
  - Cough [Unknown]
  - Lung disorder [Unknown]
  - Respiratory failure [Fatal]
  - Pneumonia [Not Recovered/Not Resolved]
  - Oropharyngeal pain [Not Recovered/Not Resolved]
  - Oral candidiasis [Unknown]
  - Leukopenia [Recovered/Resolved]
  - Thrombocytopenia [Recovered/Resolved]
  - Dyspnoea [Not Recovered/Not Resolved]
  - Nasal congestion [Unknown]
  - Pyrexia [Unknown]
  - Pyrexia [Recovered/Resolved]
  - Pyrexia [Recovered/Resolved]

NARRATIVE: CASE EVENT DATE: 20221101
